FAERS Safety Report 23706222 (Version 1)
Quarter: 2024Q2

REPORT INFORMATION
  Report Type: Spontaneous
  Country: US (occurrence: None)
  Receive Date: 20240403
  Receipt Date: 20240403
  Transmission Date: 20240715
  Serious: No
  Sender: FDA-Public Use
  Company Number: None

PATIENT
  Age: 46 Year
  Sex: Female
  Weight: 77.11 kg

DRUGS (1)
  1. LEVOTHYROXINE [Suspect]
     Active Substance: LEVOTHYROXINE\LEVOTHYROXINE SODIUM
     Indication: Hypothyroidism
     Dosage: OTHER FREQUENCY : ONE TABLET DAILY;?
     Route: 048
     Dates: start: 20230719, end: 20240314

REACTIONS (2)
  - Fatigue [None]
  - Palpitations [None]

NARRATIVE: CASE EVENT DATE: 20240313
